FAERS Safety Report 22089746 (Version 1)
Quarter: 2023Q1

REPORT INFORMATION
  Report Type: Spontaneous
  Country: CN (occurrence: CN)
  Receive Date: 20230313
  Receipt Date: 20230313
  Transmission Date: 20230417
  Serious: Yes (Hospitalization, Other)
  Sender: FDA-Public Use
  Company Number: CN-BAYER-2023A026598

PATIENT
  Age: 69 Year
  Sex: Male
  Weight: 70 kg

DRUGS (1)
  1. STIVARGA [Suspect]
     Active Substance: REGORAFENIB
     Indication: Hepatocellular carcinoma
     Dosage: 120 MG, QD
     Route: 048
     Dates: start: 20230210, end: 20230213

REACTIONS (7)
  - Pyrexia [None]
  - Oropharyngeal pain [None]
  - Cough [None]
  - Myalgia [None]
  - Haemorrhage subcutaneous [Recovering/Resolving]
  - Coagulopathy [Recovering/Resolving]
  - Off label use [None]

NARRATIVE: CASE EVENT DATE: 20230210
